FAERS Safety Report 10192391 (Version 1)
Quarter: 2014Q2

REPORT INFORMATION
  Report Type: Spontaneous
  Country: US (occurrence: US)
  Receive Date: 20140523
  Receipt Date: 20140523
  Transmission Date: 20141212
  Serious: Yes (Other)
  Sender: FDA-Public Use
  Company Number: US-ACTAVIS-2014-11092

PATIENT
  Sex: Female

DRUGS (3)
  1. BROMOCRIPTINE MESYLATE (UNKNOWN) [Suspect]
     Indication: PROLACTINOMA
     Dosage: 5 MG, DAILY
     Route: 048
  2. CABERGOLINE [Suspect]
     Indication: PROLACTINOMA
     Dosage: 2.5 MG, 2/WEEK
     Route: 065
  3. SERTRALINE [Concomitant]
     Indication: PRODUCT USED FOR UNKNOWN INDICATION
     Dosage: 50 MG, DAILY
     Route: 065

REACTIONS (14)
  - Compulsive shopping [Recovering/Resolving]
  - Pathological gambling [Recovering/Resolving]
  - Hyperphagia [Unknown]
  - Headache [Recovering/Resolving]
  - Increased appetite [None]
  - Treatment noncompliance [None]
  - Economic problem [None]
  - Aggression [None]
  - Anxiety [None]
  - Irritability [None]
  - Frustration [None]
  - Hostility [None]
  - Depression [None]
  - Blood prolactin decreased [None]
